FAERS Safety Report 5255470-6 (Version None)
Quarter: 2007Q1

REPORT INFORMATION
  Report Type: 
  Country: None (occurrence: None)
  Receive Date: 20061201
  Receipt Date: 20061026
  Transmission Date: 20070707
  Serious: Yes (Hospitalization)
  Sender: FDA-Public Use
  Company Number: 2006MP001168

PATIENT

DRUGS (1)
  1. DACOGEN [Suspect]
     Dates: start: 20060101

REACTIONS (1)
  - DIZZINESS [None]
